FAERS Safety Report 6417983-0 (Version None)
Quarter: 2009Q4

REPORT INFORMATION
  Report Type: 
  Country: None (occurrence: None)
  Receive Date: 20091028
  Receipt Date: 20091016
  Transmission Date: 20100525
  Serious: Yes (Hospitalization)
  Sender: FDA-Public Use
  Company Number: BE-CELGENEUS-013-50794-09090868

PATIENT
  Sex: Male

DRUGS (2)
  1. VIDAZA [Suspect]
     Route: 050
     Dates: start: 20090323
  2. VIDAZA [Suspect]
     Route: 050
     Dates: start: 20090727

REACTIONS (1)
  - ENCEPHALOPATHY [None]
